FAERS Safety Report 20319163 (Version 1)
Quarter: 2022Q1

REPORT INFORMATION
  Report Type: Spontaneous
  Country: US (occurrence: None)
  Receive Date: 20220110
  Receipt Date: 20220110
  Transmission Date: 20220423
  Serious: Yes (Other)
  Sender: FDA-Public Use
  Company Number: None

PATIENT
  Age: 61 Year
  Sex: Female
  Weight: 92.3 kg

DRUGS (13)
  1. BARICITINIB [Suspect]
     Active Substance: BARICITINIB
     Indication: Acute respiratory failure
     Dosage: OTHER FREQUENCY : ONCE;?
     Route: 048
     Dates: start: 20211220, end: 20211220
  2. BARICITINIB [Suspect]
     Active Substance: BARICITINIB
     Indication: Acute respiratory failure
     Dosage: FREQUENCY : DAILY;?
     Route: 048
     Dates: start: 20211221, end: 20211226
  3. ACETAMINOPHEN [Concomitant]
     Active Substance: ACETAMINOPHEN
     Dates: start: 20211223, end: 20211224
  4. ALBUTEROL\IPRATROPIUM [Concomitant]
     Active Substance: ALBUTEROL\IPRATROPIUM
     Dates: start: 20211219, end: 20211219
  5. BENZONATATE [Concomitant]
     Active Substance: BENZONATATE
     Dates: start: 20211220, end: 20211226
  6. CHOLECALCIFEROL [Concomitant]
     Active Substance: CHOLECALCIFEROL
     Dates: start: 20211220, end: 20211227
  7. DEXAMETHASONE [Concomitant]
     Active Substance: DEXAMETHASONE
     Dates: start: 20211219
  8. ENOXAPARIN [Concomitant]
     Active Substance: ENOXAPARIN
     Dates: start: 20211219, end: 20211226
  9. FAMOTIDINE [Concomitant]
     Active Substance: FAMOTIDINE
     Dates: start: 20211219, end: 20211227
  10. INSULIN ASPART [Concomitant]
     Active Substance: INSULIN ASPART
     Dates: start: 20211221, end: 20211223
  11. LEVOTHYROXINE [Concomitant]
     Active Substance: LEVOTHYROXINE
     Dates: start: 20211220, end: 20211227
  12. MELATONIN [Concomitant]
     Active Substance: MELATONIN
     Dates: start: 20211220, end: 20211226
  13. POTASSIUM CHLORIDE [Concomitant]
     Active Substance: POTASSIUM CHLORIDE
     Dates: start: 20211219, end: 20211227

REACTIONS (4)
  - Alanine aminotransferase increased [None]
  - Aspartate aminotransferase increased [None]
  - Blood bilirubin increased [None]
  - Blood alkaline phosphatase increased [None]

NARRATIVE: CASE EVENT DATE: 20211223
